FAERS Safety Report 19117688 (Version 1)
Quarter: 2021Q2

REPORT INFORMATION
  Report Type: Spontaneous
  Country: DE (occurrence: DE)
  Receive Date: 20210409
  Receipt Date: 20210409
  Transmission Date: 20210717
  Serious: Yes (Other)
  Sender: FDA-Public Use
  Company Number: DE-009507513-2104DEU001692

PATIENT
  Age: 54 Year
  Sex: Male
  Weight: 90 kg

DRUGS (7)
  1. JANUVIA [Suspect]
     Active Substance: SITAGLIPTIN PHOSPHATE
     Dosage: 1 PIECE DAILY
     Dates: start: 201903
  2. ASSA [Concomitant]
     Dosage: 1 PIECE DAILY
     Dates: start: 201903
  3. RAMILICH [Suspect]
     Active Substance: RAMIPRIL
     Dosage: 1 PIECE DAILY
     Dates: start: 201703
  4. TAMSULOSIN HYDROCHLORIDE. [Suspect]
     Active Substance: TAMSULOSIN HYDROCHLORIDE
     Dosage: 1 PIECE DAILY
     Dates: start: 201903
  5. ATORVASTATIN CALCIUM. [Concomitant]
     Active Substance: ATORVASTATIN CALCIUM
     Dosage: 1 PIECE DAILY
     Dates: start: 202103
  6. GABAPENTIN. [Concomitant]
     Active Substance: GABAPENTIN
     Dosage: 3 PIECE DAILY
     Dates: start: 202009
  7. INDAPAMIDE. [Concomitant]
     Active Substance: INDAPAMIDE
     Dosage: 1 PIECE DAILY
     Dates: start: 201903

REACTIONS (1)
  - Erectile dysfunction [Not Recovered/Not Resolved]

NARRATIVE: CASE EVENT DATE: 201903
